FAERS Safety Report 14977306 (Version 3)
Quarter: 2022Q2

REPORT INFORMATION
  Report Type: Report from Study
  Country: CN (occurrence: None)
  Receive Date: 20180606
  Receipt Date: 20220623
  Transmission Date: 20220721
  Serious: Yes (Hospitalization)
  Sender: FDA-Public Use
  Company Number: CN-ROCHE-2128318

PATIENT
  Age: 35 Year
  Sex: Female
  Weight: 67 kg

DRUGS (11)
  1. ADO-TRASTUZUMAB EMTANSINE [Suspect]
     Active Substance: ADO-TRASTUZUMAB EMTANSINE
     Indication: HER2 positive breast cancer
     Dosage: MOST RECENT DOSE OF TRASTUZUMAB EMTANSINE 244.8 MG ?START DATE OF MOST RECENT DOSE OF STUDY DRUG PRI
     Route: 042
     Dates: start: 20180103
  2. ZOLEDRONIC ACID [Concomitant]
     Active Substance: ZOLEDRONIC ACID
     Indication: Metastases to bone
     Dates: start: 20171009
  3. URSODIOL [Concomitant]
     Active Substance: URSODIOL
     Indication: Hepatic failure
     Dates: start: 20180124
  4. WUZHI [Concomitant]
     Indication: Hepatic failure
     Dates: start: 20180124
  5. WUZHI [Concomitant]
     Dates: start: 20180214
  6. HEPARIN SODIUM [Concomitant]
     Active Substance: HEPARIN SODIUM
     Dates: start: 20180524, end: 20180524
  7. CEFMINOX SODIUM [Concomitant]
     Active Substance: CEFMINOX SODIUM
     Dates: start: 20180522, end: 20180525
  8. VITAMIN B6 [Concomitant]
     Active Substance: PYRIDOXINE HYDROCHLORIDE
     Dates: start: 20180523, end: 20180525
  9. NADROPARIN CALCIUM [Concomitant]
     Active Substance: NADROPARIN CALCIUM
     Dates: start: 20180523, end: 20180525
  10. POTASSIUM CHLORIDE [Concomitant]
     Active Substance: POTASSIUM CHLORIDE
     Dates: start: 20180523, end: 20180525
  11. POSTERIOR PITUITARY INJECTION [Concomitant]
     Indication: Haemostasis
     Dates: start: 20180523, end: 20180523

REACTIONS (1)
  - Ovarian cyst [Recovered/Resolved]

NARRATIVE: CASE EVENT DATE: 20180519
